FAERS Safety Report 20675342 (Version 1)
Quarter: 2022Q2

REPORT INFORMATION
  Report Type: Report from Study
  Country: US (occurrence: US)
  Receive Date: 20220405
  Receipt Date: 20220405
  Transmission Date: 20220721
  Serious: No
  Sender: FDA-Public Use
  Company Number: US-ETON PHARMACEUTICALS, INC-2022ETO000056

PATIENT

DRUGS (1)
  1. ALKINDI SPRINKLE [Suspect]
     Active Substance: HYDROCORTISONE
     Indication: Adrenocortical insufficiency acute
     Dosage: 0.5 AND 1 MG, TID
     Route: 048
     Dates: start: 202202, end: 2022

REACTIONS (1)
  - Choking [Unknown]

NARRATIVE: CASE EVENT DATE: 20220201
